FAERS Safety Report 4488971-9 (Version None)
Quarter: 2004Q4

REPORT INFORMATION
  Report Type: 
  Country: None (occurrence: None)
  Receive Date: 20041029
  Receipt Date: 20040831
  Transmission Date: 20050328
  Serious: Yes (Other)
  Sender: FDA-Public Use
  Company Number: FR-SOLVAY-00304003042

PATIENT
  Age: 18885 Day
  Sex: Male

DRUGS (2)
  1. ANDROGEL [Suspect]
     Indication: HYPOGONADISM
     Dosage: DAILY DOSE: 2.5 G. FREQUENCY:UNKNOWN
     Route: 062
     Dates: start: 20040601, end: 20040810
  2. ANDROGEL [Suspect]
     Dosage: DAILY DOSE: 5 G. FREQUENCY:UNKNOWN
     Route: 062
     Dates: start: 20040810

REACTIONS (1)
  - PHLEBITIS SUPERFICIAL [None]
